FAERS Safety Report 4887420-6 (Version None)
Quarter: 2006Q1

REPORT INFORMATION
  Report Type: 
  Country: None (occurrence: None)
  Receive Date: 20060123
  Receipt Date: 20060116
  Transmission Date: 20060701
  Serious: Yes (Hospitalization)
  Sender: FDA-Public Use
  Company Number: 2006AP00241

PATIENT
  Age: 24791 Day
  Sex: Female
  Weight: 54 kg

DRUGS (4)
  1. IRESSA [Suspect]
     Indication: BREAST CANCER
     Route: 048
     Dates: start: 20060105, end: 20060115
  2. PACLITAXEL [Suspect]
     Indication: BREAST CANCER
     Route: 042
     Dates: start: 20060105, end: 20060105
  3. EPIRUBICIN [Suspect]
     Indication: BREAST CANCER
     Route: 042
     Dates: start: 20060105, end: 20060105
  4. D FOSFENAL [Concomitant]

REACTIONS (3)
  - FEBRILE NEUTROPENIA [None]
  - HAEMOGLOBIN DECREASED [None]
  - WHITE BLOOD CELL COUNT DECREASED [None]
